FAERS Safety Report 14900547 (Version 1)
Quarter: 2018Q2

REPORT INFORMATION
  Report Type: Spontaneous
  Country: US (occurrence: US)
  Receive Date: 20180516
  Receipt Date: 20180516
  Transmission Date: 20180711
  Serious: No
  Sender: FDA-Public Use
  Company Number: US-PFIZER INC-2018196359

PATIENT
  Age: 7 Decade
  Sex: Female
  Weight: 41.28 kg

DRUGS (3)
  1. ADVIL [Suspect]
     Active Substance: IBUPROFEN
     Indication: HERPES ZOSTER
     Dosage: UNK
  2. TOPROL XL [Concomitant]
     Active Substance: METOPROLOL SUCCINATE
     Indication: BLOOD PRESSURE ABNORMAL
     Dosage: 100 MG, 1X/DAY
     Route: 048
  3. MEPROBAMATE. [Concomitant]
     Active Substance: MEPROBAMATE
     Indication: ANXIETY
     Dosage: 400 MG, 4X/DAY
     Route: 048

REACTIONS (2)
  - Headache [Unknown]
  - Intentional product misuse [Unknown]
